FAERS Safety Report 24992690 (Version 2)
Quarter: 2025Q3

REPORT INFORMATION
  Report Type: Report from Study
  Country: US (occurrence: US)
  Receive Date: 20250221
  Receipt Date: 20250716
  Transmission Date: 20251021
  Serious: Yes (Other)
  Sender: TAKEDA
  Company Number: US-TAKEDA-2025TUS017281

PATIENT
  Age: 80 Year
  Sex: Female

DRUGS (10)
  1. IXAZOMIB [Suspect]
     Active Substance: IXAZOMIB
     Indication: Plasma cell myeloma
  2. IXAZOMIB [Suspect]
     Active Substance: IXAZOMIB
  3. POMALYST [Concomitant]
     Active Substance: POMALIDOMIDE
     Dosage: UNK, QOD
  4. AMLODIPINE [Concomitant]
     Active Substance: AMLODIPINE BESYLATE
     Indication: Hypertension
  5. ACYCLOVIR [Concomitant]
     Active Substance: ACYCLOVIR
  6. SULFAMETHOXAZOLE\TRIMETHOPRIM [Concomitant]
     Active Substance: SULFAMETHOXAZOLE\TRIMETHOPRIM
  7. DARZALEX [Concomitant]
     Active Substance: DARATUMUMAB
  8. ASPIRIN [Concomitant]
     Active Substance: ASPIRIN
  9. AMLODIPINE BESYLATE [Concomitant]
     Active Substance: AMLODIPINE BESYLATE
  10. HYDRALAZINE [Concomitant]
     Active Substance: HYDRALAZINE HYDROCHLORIDE

REACTIONS (3)
  - Plasma cell myeloma refractory [Not Recovered/Not Resolved]
  - Blood immunoglobulin A increased [Not Recovered/Not Resolved]
  - Rash [Unknown]

NARRATIVE: CASE EVENT DATE: 20250609
